FAERS Safety Report 12760459 (Version 6)
Quarter: 2016Q4

REPORT INFORMATION
  Report Type: Spontaneous
  Country: US (occurrence: US)
  Receive Date: 20160919
  Receipt Date: 20161228
  Transmission Date: 20170207
  Serious: Yes (Hospitalization)
  Sender: FDA-Public Use
  Company Number: US-ACTELION-A-US2016-142073

PATIENT
  Age: 49 Year
  Sex: Male

DRUGS (3)
  1. UPTRAVI [Suspect]
     Active Substance: SELEXIPAG
     Dosage: 200 UNK, UNK
     Route: 048
     Dates: start: 20160817, end: 20161216
  2. UPTRAVI [Suspect]
     Active Substance: SELEXIPAG
     Indication: PULMONARY ARTERIAL HYPERTENSION
     Dosage: 400 MCG, BID
     Route: 048
     Dates: start: 20160907, end: 20161216
  3. OPSUMIT [Suspect]
     Active Substance: MACITENTAN
     Indication: PULMONARY ARTERIAL HYPERTENSION
     Dosage: 10 MCG, BID
     Route: 048
     Dates: start: 20160817, end: 20161216

REACTIONS (6)
  - Headache [Not Recovered/Not Resolved]
  - Haemoglobin decreased [Not Recovered/Not Resolved]
  - Transfusion [Not Recovered/Not Resolved]
  - Myalgia [Not Recovered/Not Resolved]
  - Treatment noncompliance [Unknown]
  - Pain in jaw [Not Recovered/Not Resolved]
